FAERS Safety Report 17140158 (Version 1)
Quarter: 2019Q4

REPORT INFORMATION
  Report Type: Spontaneous
  Country: US (occurrence: US)
  Receive Date: 20191211
  Receipt Date: 20191211
  Transmission Date: 20200122
  Serious: No
  Sender: FDA-Public Use
  Company Number: US-UCBSA-2016013516

PATIENT
  Sex: Male

DRUGS (4)
  1. ATIVAN [Concomitant]
     Active Substance: LORAZEPAM
     Indication: PRODUCT USED FOR UNKNOWN INDICATION
     Dosage: 4 MG
  2. OXCARBAZEPINE. [Concomitant]
     Active Substance: OXCARBAZEPINE
     Indication: PRODUCT USED FOR UNKNOWN INDICATION
  3. KEPPRA [Suspect]
     Active Substance: LEVETIRACETAM
     Indication: SEIZURE PROPHYLAXIS
     Dosage: 4500 MG/DAY
  4. VIMPAT [Concomitant]
     Active Substance: LACOSAMIDE
     Indication: PRODUCT USED FOR UNKNOWN INDICATION
     Dosage: 200 MG

REACTIONS (2)
  - Overdose [Unknown]
  - Off label use [Unknown]
